FAERS Safety Report 6653655-5 (Version None)
Quarter: 2010Q1

REPORT INFORMATION
  Report Type: 
  Country: None (occurrence: None)
  Receive Date: 20100326
  Receipt Date: 20081118
  Transmission Date: 20100710
  Serious: Yes (Life-Threatening, Hospitalization, Other)
  Sender: FDA-Public Use
  Company Number: IN-PFIZER INC-2008031631

PATIENT
  Age: 55 Year
  Sex: Male
  Weight: 40 kg

DRUGS (15)
  1. *FLUOROURACIL [Suspect]
     Indication: COLORECTAL CANCER METASTATIC
     Dosage: 2400 MG/M2, EVERY 2 WEEKS
     Route: 042
     Dates: start: 20080311, end: 20080330
  2. *FLUOROURACIL [Suspect]
     Dosage: 400 MG/M2 (564 MG), EVERY 2 WEEKS
     Route: 040
     Dates: start: 20080311, end: 20080328
  3. BLINDED *NO SUBJECT DRUG [Suspect]
     Indication: COLORECTAL CANCER METASTATIC
     Dosage: UNK
     Route: 048
     Dates: start: 20080311, end: 20080408
  4. BLINDED *PLACEBO [Suspect]
     Indication: COLORECTAL CANCER METASTATIC
     Dosage: UNK
     Route: 048
     Dates: start: 20080311, end: 20080408
  5. BLINDED SUNITINIB MALATE [Suspect]
     Indication: COLORECTAL CANCER METASTATIC
     Dosage: UNK
     Route: 048
     Dates: start: 20080311, end: 20080408
  6. IRINOTECAN HCL [Suspect]
     Indication: COLORECTAL CANCER METASTATIC
     Dosage: 180 MG/M2, EVERY 2 WEEKS
     Route: 042
     Dates: start: 20080311, end: 20080328
  7. *CALCIUM FOLINATE [Suspect]
     Indication: COLORECTAL CANCER METASTATIC
     Dosage: 200 MG/M2, EVERY 2 WEEKS
     Route: 042
     Dates: start: 20080311, end: 20080328
  8. LOPERAMIDE [Concomitant]
     Route: 048
     Dates: start: 20080328, end: 20080329
  9. GRANISETRON [Concomitant]
     Route: 048
     Dates: start: 20080330, end: 20080403
  10. PANTOPRAZOLE [Concomitant]
     Route: 048
     Dates: start: 20080331, end: 20080404
  11. LORAZEPAM [Concomitant]
     Route: 048
     Dates: start: 20080330, end: 20080403
  12. SPARFLOXACIN [Concomitant]
     Route: 048
     Dates: start: 20080403, end: 20080409
  13. AUGMENTIN [Concomitant]
     Route: 048
     Dates: start: 20080403, end: 20080409
  14. BECOSULES Z [Concomitant]
     Route: 048
     Dates: start: 20080403, end: 20080409
  15. POVIDONE IODINE [Concomitant]
     Dates: start: 20080403

REACTIONS (2)
  - FEBRILE NEUTROPENIA [None]
  - HYPOKALAEMIA [None]
